FAERS Safety Report 5789302-4 (Version None)
Quarter: 2008Q2

REPORT INFORMATION
  Report Type: 
  Country: None (occurrence: None)
  Receive Date: 20080623
  Receipt Date: 20080606
  Transmission Date: 20081010
  Serious: Yes (Hospitalization)
  Sender: FDA-Public Use
  Company Number: DSA_29713_2007

PATIENT
  Sex: Male

DRUGS (12)
  1. HERBESSER R (HERBESSER R ) (NOT SPECIFIED) [Suspect]
     Indication: ANGINA PECTORIS
     Dosage: (200 MG QD ORAL), (200 MG QD)
     Route: 048
     Dates: start: 20070306, end: 20070307
  2. HERBESSER R (HERBESSER R ) (NOT SPECIFIED) [Suspect]
     Indication: ANGINA PECTORIS
     Dosage: (200 MG QD ORAL), (200 MG QD)
     Route: 048
     Dates: start: 20070314, end: 20070315
  3. LIPITOR [Suspect]
     Indication: HYPERCHOLESTEROLAEMIA
     Dosage: (5 MG QD ORAL)
     Route: 048
     Dates: start: 20070213
  4. FRANDOL [Concomitant]
  5. TICLOPIDINE HCL [Concomitant]
  6. ASPIRIN [Concomitant]
  7. RENIVACE [Concomitant]
  8. DEPAS [Concomitant]
  9. ITOROL [Concomitant]
  10. AMARYL [Concomitant]
  11. FLAVERIC [Concomitant]
  12. GASTER /00706001/ [Concomitant]

REACTIONS (5)
  - BLOOD ALKALINE PHOSPHATASE INCREASED [None]
  - BRADYCARDIA [None]
  - DRUG INTERACTION [None]
  - MYOCARDIAL INFARCTION [None]
  - SINUS ARREST [None]
